FAERS Safety Report 16895429 (Version 2)
Quarter: 2019Q4

REPORT INFORMATION
  Report Type: Spontaneous
  Country: BR (occurrence: BR)
  Receive Date: 20191008
  Receipt Date: 20191218
  Transmission Date: 20200122
  Serious: Yes (Life-Threatening, Hospitalization)
  Sender: FDA-Public Use
  Company Number: BR-BAUSCH-BL-2019-055812

PATIENT
  Sex: Male
  Weight: 80 kg

DRUGS (1)
  1. ENALAPRIL MALEATE. [Suspect]
     Active Substance: ENALAPRIL MALEATE
     Indication: HYPERTENSION
     Route: 065

REACTIONS (1)
  - Angioedema [Recovered/Resolved]
